FAERS Safety Report 8200117-X (Version None)
Quarter: 2012Q1

REPORT INFORMATION
  Report Type: 
  Country: None (occurrence: None)
  Receive Date: 20120309
  Receipt Date: 20120309
  Transmission Date: 20120608
  Serious: Yes (Other)
  Sender: FDA-Public Use
  Company Number: None

PATIENT
  Sex: Female
  Weight: 75 kg

DRUGS (2)
  1. LIALDA [Suspect]
     Indication: COLITIS ULCERATIVE
     Dosage: 4.8 GRAMS LIALDA DAILY 047
     Dates: start: 20101101
  2. CAMRESE [Concomitant]

REACTIONS (5)
  - ALCOHOL USE [None]
  - ARTHRALGIA [None]
  - PRURITUS [None]
  - OEDEMA PERIPHERAL [None]
  - RASH [None]
